FAERS Safety Report 4770982-7 (Version None)
Quarter: 2005Q3

REPORT INFORMATION
  Report Type: 
  Country: None (occurrence: None)
  Receive Date: 20050914
  Receipt Date: 20050811
  Transmission Date: 20060218
  Serious: Yes (Other)
  Sender: FDA-Public Use
  Company Number: 12110

PATIENT
  Age: 17 Year
  Sex: Female
  Weight: 49 kg

DRUGS (3)
  1. METHOTREXATE [Suspect]
     Indication: OSTEOSARCOMA RECURRENT
     Dosage: 14.7 G DAILY IV
     Route: 042
     Dates: start: 20050801, end: 20050801
  2. ONCOVIN [Concomitant]
  3. NASEA [Concomitant]

REACTIONS (2)
  - ALANINE AMINOTRANSFERASE INCREASED [None]
  - ASPARTATE AMINOTRANSFERASE INCREASED [None]
